FAERS Safety Report 4773879-1 (Version None)
Quarter: 2005Q3

REPORT INFORMATION
  Report Type: 
  Country: None (occurrence: None)
  Receive Date: 20050919
  Receipt Date: 20050901
  Transmission Date: 20060218
  Serious: Yes (Death)
  Sender: FDA-Public Use
  Company Number: 12242

PATIENT
  Age: 66 Year
  Sex: Male

DRUGS (5)
  1. FLUOROURACIL [Suspect]
     Indication: COLORECTAL CANCER
     Dosage: 425 MG/M2 DAILY IV
     Route: 042
  2. LEUCOVORIN CALCIUM [Suspect]
     Indication: COLORECTAL CANCER
     Dosage: 100 MG/M2 DAILY IV
     Route: 042
  3. OXALIPLATIN [Suspect]
     Indication: COLORECTAL CANCER
     Dosage: 130 MG/M2 PER CYCLE IV
     Route: 042
  4. DEXAMETHASONE [Concomitant]
  5. ANTI-5HT3 [Concomitant]

REACTIONS (3)
  - ANAEMIA [None]
  - CARDIOMYOPATHY ACUTE [None]
  - FEBRILE NEUTROPENIA [None]
